FAERS Safety Report 23263677 (Version 1)
Quarter: 2023Q4

REPORT INFORMATION
  Report Type: Report from Study
  Country: FR (occurrence: FR)
  Receive Date: 20231205
  Receipt Date: 20231205
  Transmission Date: 20240110
  Serious: Yes (Other)
  Sender: FDA-Public Use
  Company Number: FR-TAKEDA-2023TUS116411

PATIENT
  Age: 74 Year
  Sex: Female

DRUGS (16)
  1. TEDUGLUTIDE [Suspect]
     Active Substance: TEDUGLUTIDE
     Indication: Short-bowel syndrome
     Dosage: 2.60 MILLIGRAM, QD
     Route: 042
     Dates: start: 20170130, end: 20170421
  2. TEDUGLUTIDE [Suspect]
     Active Substance: TEDUGLUTIDE
     Indication: Short-bowel syndrome
     Dosage: 2.60 MILLIGRAM, QD
     Route: 042
     Dates: start: 20170130, end: 20170421
  3. TEDUGLUTIDE [Suspect]
     Active Substance: TEDUGLUTIDE
     Indication: Short-bowel syndrome
     Dosage: 2.60 MILLIGRAM, QD
     Route: 042
     Dates: start: 20170130, end: 20170421
  4. TEDUGLUTIDE [Suspect]
     Active Substance: TEDUGLUTIDE
     Indication: Short-bowel syndrome
     Dosage: 2.60 MILLIGRAM, QD
     Route: 042
     Dates: start: 20170130, end: 20170421
  5. TEDUGLUTIDE [Suspect]
     Active Substance: TEDUGLUTIDE
     Dosage: 2.80 MILLIGRAM, QD
     Route: 042
     Dates: start: 20170421, end: 20231120
  6. TEDUGLUTIDE [Suspect]
     Active Substance: TEDUGLUTIDE
     Dosage: 2.80 MILLIGRAM, QD
     Route: 042
     Dates: start: 20170421, end: 20231120
  7. TEDUGLUTIDE [Suspect]
     Active Substance: TEDUGLUTIDE
     Dosage: 2.80 MILLIGRAM, QD
     Route: 042
     Dates: start: 20170421, end: 20231120
  8. TEDUGLUTIDE [Suspect]
     Active Substance: TEDUGLUTIDE
     Dosage: 2.80 MILLIGRAM, QD
     Route: 042
     Dates: start: 20170421, end: 20231120
  9. TEDUGLUTIDE [Suspect]
     Active Substance: TEDUGLUTIDE
     Dosage: 2.70 MILLIGRAM, QD
     Route: 042
     Dates: start: 20231121
  10. TEDUGLUTIDE [Suspect]
     Active Substance: TEDUGLUTIDE
     Dosage: 2.70 MILLIGRAM, QD
     Route: 042
     Dates: start: 20231121
  11. TEDUGLUTIDE [Suspect]
     Active Substance: TEDUGLUTIDE
     Dosage: 2.70 MILLIGRAM, QD
     Route: 042
     Dates: start: 20231121
  12. TEDUGLUTIDE [Suspect]
     Active Substance: TEDUGLUTIDE
     Dosage: 2.70 MILLIGRAM, QD
     Route: 042
     Dates: start: 20231121
  13. VANCOMYCIN [Concomitant]
     Active Substance: VANCOMYCIN
     Indication: Urinary tract infection
     Dosage: 125 MILLIGRAM, TID
     Route: 048
     Dates: start: 20230726
  14. MAGNESIUM [Concomitant]
     Active Substance: MAGNESIUM
     Indication: Hypomagnesaemia
     Dosage: 1 DOSAGE FORM, QD
     Route: 048
     Dates: start: 20230411
  15. TICAGRELOR [Concomitant]
     Active Substance: TICAGRELOR
     Indication: Hyperplasia
     Dosage: 90 MILLIGRAM, BID
     Route: 048
     Dates: start: 20230104
  16. CANDESARTAN [Concomitant]
     Active Substance: CANDESARTAN
     Indication: Cardiovascular event prophylaxis
     Dosage: 8 MILLIGRAM, QD
     Route: 048
     Dates: start: 20210921

REACTIONS (1)
  - Cerebrovascular accident [Recovered/Resolved]

NARRATIVE: CASE EVENT DATE: 20201225
